FAERS Safety Report 12692369 (Version 1)
Quarter: 2016Q3

REPORT INFORMATION
  Report Type: Report from Study
  Country: AU (occurrence: AU)
  Receive Date: 20160828
  Receipt Date: 20160828
  Transmission Date: 20161109
  Serious: Yes (Other)
  Sender: FDA-Public Use
  Company Number: AU-MYLANLABS-2016M1035643

PATIENT

DRUGS (43)
  1. FLUOXETINE [Suspect]
     Active Substance: FLUOXETINE HYDROCHLORIDE
     Dosage: 40 MG, QD
     Route: 048
     Dates: start: 20160629
  2. CLOZAPINE. [Suspect]
     Active Substance: CLOZAPINE
     Dosage: 25 MG, AM
     Route: 048
     Dates: start: 20160625
  3. CLOZAPINE. [Suspect]
     Active Substance: CLOZAPINE
     Dosage: 25 MG, AM
     Route: 048
     Dates: start: 20160630
  4. CLOZAPINE. [Suspect]
     Active Substance: CLOZAPINE
     Dosage: 125 MG, PM
     Route: 048
     Dates: start: 20160706
  5. FLUOXETINE [Suspect]
     Active Substance: FLUOXETINE HYDROCHLORIDE
     Indication: MAJOR DEPRESSION
     Dosage: 40 MG, UNK
     Route: 048
     Dates: start: 201603
  6. CLOZAPINE. [Suspect]
     Active Substance: CLOZAPINE
     Indication: SCHIZOPHRENIA
     Dosage: 12.5 MG, AM
     Route: 048
     Dates: start: 20160617
  7. CLOZAPINE. [Suspect]
     Active Substance: CLOZAPINE
     Dosage: 25 MG, AM
     Route: 048
     Dates: start: 20160621
  8. CLOZAPINE. [Suspect]
     Active Substance: CLOZAPINE
     Dosage: 50 MG, PM
     Route: 048
     Dates: start: 20160623
  9. CLOZAPINE. [Suspect]
     Active Substance: CLOZAPINE
     Dosage: 125 MG, PM
     Route: 048
     Dates: start: 20160707
  10. CLOZAPINE. [Suspect]
     Active Substance: CLOZAPINE
     Dosage: 100 MG, PM
     Route: 048
     Dates: start: 20160703
  11. CLOZAPINE. [Suspect]
     Active Substance: CLOZAPINE
     Dosage: 75 MG, PM
     Route: 048
     Dates: start: 20160627
  12. CLOZAPINE. [Suspect]
     Active Substance: CLOZAPINE
     Dosage: 25 MG, AM
     Route: 048
     Dates: start: 20160629
  13. METFORMIN [Concomitant]
     Active Substance: METFORMIN HYDROCHLORIDE
     Dosage: 500 MG, PM
     Route: 048
     Dates: start: 20160629
  14. CLOZAPINE. [Suspect]
     Active Substance: CLOZAPINE
     Dosage: 25 MG, AM
     Route: 048
     Dates: start: 20160618
  15. CLOZAPINE. [Suspect]
     Active Substance: CLOZAPINE
     Dosage: 25 MG, PM
     Route: 048
     Dates: start: 20160621
  16. CLOZAPINE. [Suspect]
     Active Substance: CLOZAPINE
     Dosage: 75 MG, PM
     Route: 048
     Dates: start: 20160626
  17. CLOZAPINE. [Suspect]
     Active Substance: CLOZAPINE
     Dosage: 25 MG, AM
     Route: 048
     Dates: start: 20160627
  18. CLOZAPINE. [Suspect]
     Active Substance: CLOZAPINE
     Dosage: 50 MG, AM
     Route: 048
     Dates: start: 20160704
  19. CLOZAPINE. [Suspect]
     Active Substance: CLOZAPINE
     Dosage: 25 MG, AM
     Route: 048
     Dates: start: 20160619
  20. CLOZAPINE. [Suspect]
     Active Substance: CLOZAPINE
     Dosage: 25 MG, AM
     Route: 048
     Dates: start: 20160620
  21. CLOZAPINE. [Suspect]
     Active Substance: CLOZAPINE
     Dosage: 50 MG, PM
     Route: 048
     Dates: start: 20160622
  22. CLOZAPINE. [Suspect]
     Active Substance: CLOZAPINE
     Dosage: 25 MG, AM
     Route: 048
     Dates: start: 20160628
  23. CLOZAPINE. [Suspect]
     Active Substance: CLOZAPINE
     Dosage: 100 MG, PM
     Route: 048
     Dates: start: 20160629
  24. CLOZAPINE. [Suspect]
     Active Substance: CLOZAPINE
     Dosage: 25 MG, AM
     Route: 048
     Dates: start: 20160701
  25. CLOZAPINE. [Suspect]
     Active Substance: CLOZAPINE
     Dosage: 50 MG, AM
     Route: 048
     Dates: start: 20160703
  26. CLOZAPINE. [Suspect]
     Active Substance: CLOZAPINE
     Dosage: 125 MG, PM
     Route: 048
     Dates: start: 20160705
  27. CLOZAPINE. [Suspect]
     Active Substance: CLOZAPINE
     Dosage: 25 MG, PM
     Route: 048
     Dates: start: 20160620
  28. CLOZAPINE. [Suspect]
     Active Substance: CLOZAPINE
     Dosage: 25 MG, AM
     Route: 048
     Dates: start: 20160623
  29. CLOZAPINE. [Suspect]
     Active Substance: CLOZAPINE
     Dosage: 75 MG, PM
     Route: 048
     Dates: start: 20160628
  30. CLOZAPINE. [Suspect]
     Active Substance: CLOZAPINE
     Dosage: 50 MG, AM
     Route: 048
     Dates: start: 20160702
  31. CLOZAPINE. [Suspect]
     Active Substance: CLOZAPINE
     Dosage: 100 MG, PM
     Route: 048
     Dates: start: 20160702
  32. CLOZAPINE. [Suspect]
     Active Substance: CLOZAPINE
     Dosage: 100 MG, PM
     Route: 048
     Dates: start: 20160704
  33. CLOZAPINE. [Suspect]
     Active Substance: CLOZAPINE
     Dosage: 50 MG, AM
     Route: 048
     Dates: start: 20160705
  34. CLOZAPINE. [Suspect]
     Active Substance: CLOZAPINE
     Dosage: 50 MG, AM
     Route: 048
     Dates: start: 20160706
  35. CLOZAPINE. [Suspect]
     Active Substance: CLOZAPINE
     Dosage: 50 MG, AM
     Route: 048
     Dates: start: 20160707
  36. METFORMIN [Concomitant]
     Active Substance: METFORMIN HYDROCHLORIDE
     Indication: WEIGHT INCREASED
     Dosage: 500 MG, AM
     Route: 048
     Dates: start: 20160629
  37. CLOZAPINE. [Suspect]
     Active Substance: CLOZAPINE
     Dosage: 25 MG, AM
     Route: 048
     Dates: start: 20160622
  38. CLOZAPINE. [Suspect]
     Active Substance: CLOZAPINE
     Dosage: 25 MG, AM
     Route: 048
     Dates: start: 20160624
  39. CLOZAPINE. [Suspect]
     Active Substance: CLOZAPINE
     Dosage: 50 MG, PM
     Route: 048
     Dates: start: 20160624
  40. CLOZAPINE. [Suspect]
     Active Substance: CLOZAPINE
     Dosage: 50 MG, PM
     Route: 048
     Dates: start: 20160625
  41. CLOZAPINE. [Suspect]
     Active Substance: CLOZAPINE
     Dosage: 25 MG, AM
     Route: 048
     Dates: start: 20160626
  42. CLOZAPINE. [Suspect]
     Active Substance: CLOZAPINE
     Dosage: 100 MG, PM
     Route: 048
     Dates: start: 20160630
  43. CLOZAPINE. [Suspect]
     Active Substance: CLOZAPINE
     Dosage: 100 MG, PM
     Route: 048
     Dates: start: 20160701

REACTIONS (16)
  - Alanine aminotransferase increased [Recovering/Resolving]
  - Blood creatine phosphokinase increased [Unknown]
  - Weight increased [Unknown]
  - C-reactive protein increased [Unknown]
  - Neutrophil count increased [Unknown]
  - Electrocardiogram QT prolonged [Not Recovered/Not Resolved]
  - Blood creatinine increased [Recovered/Resolved]
  - Mood altered [Unknown]
  - Monocyte count increased [Unknown]
  - Blood urea nitrogen/creatinine ratio increased [Recovered/Resolved]
  - Blood bilirubin increased [Unknown]
  - Sedation [Unknown]
  - Constipation [Unknown]
  - Bilirubin conjugated increased [Recovered/Resolved]
  - Sinus tachycardia [Unknown]
  - White blood cell count increased [Unknown]

NARRATIVE: CASE EVENT DATE: 20160614
